FAERS Safety Report 10788708 (Version 1)
Quarter: 2015Q1

REPORT INFORMATION
  Report Type: Report from Study
  Country: GB (occurrence: None)
  Receive Date: 20150210
  Receipt Date: 20150210
  Transmission Date: 20150721
  Serious: Yes (Life-Threatening)
  Sender: FDA-Public Use
  Company Number: GBR-CLT-2009009

PATIENT
  Age: 8 Day
  Sex: Female

DRUGS (3)
  1. GENTAMICIN. [Concomitant]
     Active Substance: GENTAMICIN
  2. CARBAGLU [Suspect]
     Active Substance: CARGLUMIC ACID
     Indication: HYPERAMMONAEMIA
     Route: 048
     Dates: start: 20080129, end: 20080129
  3. BENZYLPENICILLIN [Concomitant]
     Active Substance: PENICILLIN G

REACTIONS (7)
  - Cardiac arrest [None]
  - Lactic acidosis [None]
  - Fungal infection [None]
  - Coagulopathy [None]
  - Thrombocytopenia [None]
  - Pyrexia [None]
  - Hypotension [None]

NARRATIVE: CASE EVENT DATE: 20080130
